FAERS Safety Report 4914247-9 (Version None)
Quarter: 2006Q1

REPORT INFORMATION
  Report Type: 
  Country: None (occurrence: None)
  Receive Date: 20060210
  Receipt Date: 20060126
  Transmission Date: 20060701
  Serious: Yes (Hospitalization)
  Sender: FDA-Public Use
  Company Number: 2006P1000070

PATIENT
  Age: 65 Year
  Sex: Female
  Weight: 85 kg

DRUGS (8)
  1. RETEPLASE (RETEPLASE) [Suspect]
     Indication: ACUTE MYOCARDIAL INFARCTION
     Dosage: IV
     Route: 042
  2. ABCIXIMAB (ABCIXIMAB) [Suspect]
     Dosage: IV
     Route: 042
  3. ASPIRIN [Concomitant]
  4. ACE INHIBITOR NOS [Concomitant]
  5. BETA BLOCKING AGENTS [Concomitant]
  6. DIURETICS [Concomitant]
  7. CLOPIDOGREL [Concomitant]
  8. TICLOPIDINE HCL [Concomitant]

REACTIONS (2)
  - CARDIAC FAILURE CONGESTIVE [None]
  - CORONARY ARTERY STENOSIS [None]
